FAERS Safety Report 15180763 (Version 1)
Quarter: 2018Q3

REPORT INFORMATION
  Report Type: Spontaneous
  Country: US (occurrence: US)
  Receive Date: 20180723
  Receipt Date: 20180723
  Transmission Date: 20181010
  Serious: Yes (Hospitalization)
  Sender: FDA-Public Use
  Company Number: US-PFIZER INC-2018287071

PATIENT
  Age: 70 Year
  Sex: Female
  Weight: 83.9 kg

DRUGS (2)
  1. LYRICA [Suspect]
     Active Substance: PREGABALIN
     Indication: NEURALGIA
     Dosage: 50 MG, DAILY (FOR 2 DAYS)
     Dates: start: 20180423, end: 20180424
  2. LYRICA [Suspect]
     Active Substance: PREGABALIN
     Dosage: 50 MG, 2X/DAY (FOR 3 DAYS)
     Dates: start: 20180425, end: 20180426

REACTIONS (9)
  - Joint instability [Unknown]
  - Laceration [Unknown]
  - Dyskinesia [Recovered/Resolved]
  - Headache [Recovering/Resolving]
  - Vision blurred [Not Recovered/Not Resolved]
  - Muscle twitching [Unknown]
  - Dizziness postural [Not Recovered/Not Resolved]
  - Fall [Unknown]
  - Tinnitus [Not Recovered/Not Resolved]

NARRATIVE: CASE EVENT DATE: 20180427
